FAERS Safety Report 15003880 (Version 1)
Quarter: 2018Q2

REPORT INFORMATION
  Report Type: Spontaneous
  Country: FR (occurrence: FR)
  Receive Date: 20180613
  Receipt Date: 20180613
  Transmission Date: 20180711
  Serious: Yes (Other)
  Sender: FDA-Public Use
  Company Number: FR-MERCK KGAA-2049321

PATIENT
  Age: 36 Year
  Sex: Male

DRUGS (5)
  1. NOVOTHYROX [Suspect]
     Active Substance: LEVOTHYROXINE SODIUM
     Dates: end: 2017
  2. NOVOTHYROX [Suspect]
     Active Substance: LEVOTHYROXINE SODIUM
     Indication: POST PROCEDURAL HYPOTHYROIDISM
  3. NOVOTHYROX [Suspect]
     Active Substance: LEVOTHYROXINE SODIUM
  4. LEVOTHYROX NF [Suspect]
     Active Substance: LEVOTHYROXINE SODIUM
  5. NOVOTHYROX [Suspect]
     Active Substance: LEVOTHYROXINE SODIUM

REACTIONS (10)
  - Blood thyroid stimulating hormone decreased [None]
  - Irritability [None]
  - Insomnia [None]
  - Oesophageal ulcer haemorrhage [None]
  - Adverse reaction [None]
  - Depression [None]
  - Fatigue [None]
  - Blood thyroid stimulating hormone increased [None]
  - Feeling hot [None]
  - Weight increased [None]

NARRATIVE: CASE EVENT DATE: 2008
